FAERS Safety Report 14495492 (Version 1)
Quarter: 2018Q1

REPORT INFORMATION
  Report Type: Spontaneous
  Country: LB (occurrence: LB)
  Receive Date: 20180206
  Receipt Date: 20180206
  Transmission Date: 20180509
  Serious: Yes (Death)
  Sender: FDA-Public Use
  Company Number: LB-ABBVIE-18P-093-2247452-00

PATIENT

DRUGS (1)
  1. VENCLEXTA [Suspect]
     Active Substance: VENETOCLAX
     Indication: ACUTE MYELOID LEUKAEMIA
     Route: 048
     Dates: start: 201712

REACTIONS (3)
  - Neutropenia [Fatal]
  - Off label use [Fatal]
  - Septic shock [Fatal]

NARRATIVE: CASE EVENT DATE: 201712
